FAERS Safety Report 26129450 (Version 1)
Quarter: 2025Q4

REPORT INFORMATION
  Report Type: Spontaneous
  Country: EU (occurrence: EU)
  Receive Date: 20251208
  Receipt Date: 20251208
  Transmission Date: 20260118
  Serious: Yes (Other)
  Sender: HETERO
  Company Number: EU-EVENT-005005

PATIENT
  Age: 63 Year
  Sex: Female

DRUGS (14)
  1. LENALIDOMIDE [Suspect]
     Active Substance: LENALIDOMIDE
     Indication: Diffuse large B-cell lymphoma
     Dosage: 25 MILLIGRAM (1ST CYCLE)
     Route: 065
     Dates: start: 20230816
  2. LENALIDOMIDE [Suspect]
     Active Substance: LENALIDOMIDE
     Dosage: 15 MILLIGRAM (3RD CYCLE)
     Route: 065
  3. LENALIDOMIDE [Suspect]
     Active Substance: LENALIDOMIDE
     Dosage: 15 MILLIGRAM (4TH CYCLE)
     Route: 065
  4. LENALIDOMIDE [Suspect]
     Active Substance: LENALIDOMIDE
     Dosage: 10 MILLIGRAM (6TH CYCLE)
     Route: 065
  5. LENALIDOMIDE [Suspect]
     Active Substance: LENALIDOMIDE
     Dosage: 10 MILLIGRAM (9TH CYCLE)
     Route: 065
  6. TAFASITAMAB [Suspect]
     Active Substance: TAFASITAMAB
     Indication: Diffuse large B-cell lymphoma
     Dosage: 25 MILLIGRAM (1ST CYCLE)
     Route: 065
     Dates: start: 20230818
  7. TAFASITAMAB [Suspect]
     Active Substance: TAFASITAMAB
     Dosage: 15 MILLIGRAM (3RD CYCLE)
     Route: 065
  8. TAFASITAMAB [Suspect]
     Active Substance: TAFASITAMAB
     Dosage: 15 MILLIGRAM (4TH CYCLE)
     Route: 065
  9. TAFASITAMAB [Suspect]
     Active Substance: TAFASITAMAB
     Dosage: 10 MILLIGRAM (6TH CYCLE)
     Route: 065
  10. TAFASITAMAB [Suspect]
     Active Substance: TAFASITAMAB
     Dosage: 10 MILLIGRAM (9TH CYCLE)
     Route: 065
  11. TAFASITAMAB [Suspect]
     Active Substance: TAFASITAMAB
     Dosage: 10TH CYCLE
     Route: 065
  12. TAFASITAMAB [Suspect]
     Active Substance: TAFASITAMAB
     Dosage: 13TH CYCLE
     Route: 065
  13. TAFASITAMAB [Suspect]
     Active Substance: TAFASITAMAB
     Dosage: 19TH CYCLE
     Route: 065
  14. TAFASITAMAB [Suspect]
     Active Substance: TAFASITAMAB
     Dosage: 25TH CYCLE
     Route: 065
     Dates: start: 20251112

REACTIONS (12)
  - Haematotoxicity [Unknown]
  - Gastrointestinal toxicity [Unknown]
  - Myelosuppression [Unknown]
  - Campylobacter gastroenteritis [Unknown]
  - Neutropenia [Unknown]
  - Skin toxicity [Unknown]
  - Hepatic enzyme decreased [Unknown]
  - Splenomegaly [Unknown]
  - Kyphosis [Unknown]
  - Vertebral wedging [Unknown]
  - Respiratory tract infection [Unknown]
  - Off label use [Unknown]

NARRATIVE: CASE EVENT DATE: 20231211
